FAERS Safety Report 18616566 (Version 1)
Quarter: 2020Q4

REPORT INFORMATION
  Report Type: Spontaneous
  Country: FR (occurrence: FR)
  Receive Date: 20201215
  Receipt Date: 20201215
  Transmission Date: 20210114
  Serious: Yes (Hospitalization)
  Sender: FDA-Public Use
  Company Number: FR-JNJFOC-20201225312

PATIENT
  Age: 33 Year
  Sex: Male
  Weight: 66 kg

DRUGS (3)
  1. RISPERDAL [Suspect]
     Active Substance: RISPERIDONE
     Indication: SCHIZOPHRENIA
     Route: 048
     Dates: start: 20200611, end: 20200624
  2. THERALENE [Suspect]
     Active Substance: TRIMEPRAZINE
     Indication: SCHIZOPHRENIA
     Route: 048
     Dates: start: 20200611, end: 20200624
  3. TERCIAN [CYAMEMAZINE] [Suspect]
     Active Substance: CYAMEMAZINE
     Indication: INSOMNIA
     Route: 048
     Dates: start: 20200603, end: 20200624

REACTIONS (2)
  - Neuroleptic malignant syndrome [Recovered/Resolved with Sequelae]
  - Malignant catatonia [Recovered/Resolved with Sequelae]

NARRATIVE: CASE EVENT DATE: 20200623
